FAERS Safety Report 25433510 (Version 2)
Quarter: 2025Q3

REPORT INFORMATION
  Report Type: Spontaneous
  Country: EU (occurrence: EU)
  Receive Date: 20250613
  Receipt Date: 20250829
  Transmission Date: 20251021
  Serious: Yes (Other)
  Sender: RANBAXY
  Company Number: EU-SUN PHARMACEUTICAL INDUSTRIES INC-2025R1-511690

PATIENT
  Age: 73 Year
  Sex: Male

DRUGS (3)
  1. LITHIUM [Suspect]
     Active Substance: LITHIUM
     Indication: Mania
     Dosage: 1000 MILLIGRAM, DAILY
     Route: 065
     Dates: start: 1972
  2. LITHIUM [Suspect]
     Active Substance: LITHIUM
     Dosage: 1500 MILLIGRAM, DAILY
     Route: 065
  3. LITHIUM [Suspect]
     Active Substance: LITHIUM
     Dosage: 500 MILLIGRAM, DAILY
     Route: 065

REACTIONS (3)
  - Chronic kidney disease [Unknown]
  - Sexual dysfunction [Unknown]
  - Tremor [Unknown]
